FAERS Safety Report 8156101-8 (Version None)
Quarter: 2012Q1

REPORT INFORMATION
  Report Type: 
  Country: None (occurrence: None)
  Receive Date: 20120222
  Receipt Date: 20120220
  Transmission Date: 20120608
  Serious: Yes (Hospitalization, Other)
  Sender: FDA-Public Use
  Company Number: US-PFIZER INC-2012044854

PATIENT
  Sex: Female
  Weight: 68.027 kg

DRUGS (6)
  1. ACCURETIC [Suspect]
     Indication: BLOOD PRESSURE ABNORMAL
     Dosage: UNK,2X/DAY
     Route: 048
     Dates: end: 20110101
  2. NORVASC [Suspect]
     Indication: BLOOD PRESSURE ABNORMAL
     Dosage: UNK
     Route: 048
     Dates: start: 20110101
  3. METFORMIN [Concomitant]
     Indication: DIABETES MELLITUS
     Dosage: 500 MG, 2X/DAY
  4. METOPROLOL TARTRATE [Suspect]
     Indication: BLOOD PRESSURE ABNORMAL
     Dosage: UNK, 2X/DAY
     Dates: start: 20110301
  5. COMBIGAN [Concomitant]
     Indication: RETINAL DISORDER
     Dosage: UNK, DAILY
  6. LUMIGAN [Concomitant]
     Indication: GLAUCOMA
     Dosage: UNK

REACTIONS (9)
  - BALANCE DISORDER [None]
  - CEREBRAL HAEMORRHAGE [None]
  - RENAL NEOPLASM [None]
  - TRANSIENT ISCHAEMIC ATTACK [None]
  - HEAD INJURY [None]
  - URINARY TRACT INFECTION [None]
  - HAEMOGLOBIN DECREASED [None]
  - FALL [None]
  - BLOOD IRON DECREASED [None]
